FAERS Safety Report 10100376 (Version 3)
Quarter: 2015Q1

REPORT INFORMATION
  Report Type: Spontaneous
  Country: US (occurrence: US)
  Receive Date: 20140423
  Receipt Date: 20150123
  Transmission Date: 20150720
  Serious: Yes (Hospitalization, Other)
  Sender: FDA-Public Use
  Company Number: US-BAYER-2014-059399

PATIENT
  Age: 27 Year
  Sex: Female
  Weight: 95.24 kg

DRUGS (2)
  1. MIRENA [Suspect]
     Active Substance: LEVONORGESTREL
     Indication: CONTRACEPTION
     Dosage: 20 MCG/24HR, CONT
     Route: 015
     Dates: start: 20100601, end: 20120302
  2. WELLBUTRIN [Concomitant]
     Active Substance: BUPROPION HYDROCHLORIDE
     Indication: ANXIETY
     Dosage: UNK
     Dates: start: 2010, end: 2012

REACTIONS (10)
  - Embedded device [None]
  - Pain [None]
  - Dysmenorrhoea [None]
  - Uterine scar [None]
  - Genital haemorrhage [None]
  - Uterine injury [None]
  - Emotional distress [None]
  - Device difficult to use [None]
  - Medical device discomfort [None]
  - Pelvic organ injury [None]

NARRATIVE: CASE EVENT DATE: 201006
